FAERS Safety Report 5444961-0 (Version None)
Quarter: 2007Q3

REPORT INFORMATION
  Report Type: 
  Country: None (occurrence: None)
  Receive Date: 20070904
  Receipt Date: 20070904
  Transmission Date: 20080115
  Serious: Yes (Other)
  Sender: FDA-Public Use
  Company Number: None

PATIENT
  Age: 60 Year
  Sex: Female
  Weight: 92.5338 kg

DRUGS (1)
  1. VYTORIN [Suspect]
     Indication: BLOOD CHOLESTEROL INCREASED
     Dosage: 1 PILL  DAILY  PO
     Route: 048
     Dates: start: 20040601, end: 20070829

REACTIONS (2)
  - MEMORY IMPAIRMENT [None]
  - WEIGHT ABNORMAL [None]
